FAERS Safety Report 21273485 (Version 1)
Quarter: 2022Q3

REPORT INFORMATION
  Report Type: Spontaneous
  Country: IE (occurrence: IE)
  Receive Date: 20220831
  Receipt Date: 20220831
  Transmission Date: 20221027
  Serious: Yes (Other)
  Sender: FDA-Public Use
  Company Number: None

PATIENT
  Age: 80 Year
  Sex: Male

DRUGS (2)
  1. OFIRMEV [Suspect]
     Active Substance: ACETAMINOPHEN
     Indication: Product used for unknown indication
     Dosage: UNK
     Route: 042
     Dates: start: 20220711
  2. FLUCLOXACILLIN [Suspect]
     Active Substance: FLUCLOXACILLIN
     Indication: Product used for unknown indication
     Dosage: HIGH DOSE
     Route: 042
     Dates: start: 20220711

REACTIONS (3)
  - Metabolic acidosis [Unknown]
  - Coma scale abnormal [Unknown]
  - Pyroglutamic acidosis [Unknown]

NARRATIVE: CASE EVENT DATE: 20220711
